FAERS Safety Report 16373982 (Version 3)
Quarter: 2019Q2

REPORT INFORMATION
  Report Type: Spontaneous
  Country: KR (occurrence: KR)
  Receive Date: 20190530
  Receipt Date: 20190621
  Transmission Date: 20190711
  Serious: Yes (Death, Hospitalization, Other)
  Sender: FDA-Public Use
  Company Number: KR-009507513-1905KOR013069

PATIENT
  Sex: Female

DRUGS (5)
  1. SODIUM CHLORIDE. [Concomitant]
     Active Substance: SODIUM CHLORIDE
     Dosage: UNK
     Dates: start: 20190308, end: 20190308
  2. KEYTRUDA [Suspect]
     Active Substance: PEMBROLIZUMAB
     Dosage: UNK
     Dates: start: 20190308
  3. KEYTRUDA [Suspect]
     Active Substance: PEMBROLIZUMAB
     Indication: LUNG NEOPLASM MALIGNANT
     Dosage: UNK
     Dates: start: 20190214, end: 20190214
  4. HUMALOG [Concomitant]
     Active Substance: INSULIN LISPRO
     Dosage: 100 IU
     Dates: start: 20190307, end: 20190307
  5. HUMALOG [Concomitant]
     Active Substance: INSULIN LISPRO
     Dosage: 100 IU
     Dates: start: 20190309, end: 20190310

REACTIONS (2)
  - Adverse event [Unknown]
  - Malignant neoplasm progression [Fatal]

NARRATIVE: CASE EVENT DATE: 2019
